FAERS Safety Report 5244556-8 (Version None)
Quarter: 2007Q1

REPORT INFORMATION
  Report Type: 
  Country: None (occurrence: None)
  Receive Date: 20061201
  Receipt Date: 20060818
  Transmission Date: 20070707
  Serious: No
  Sender: FDA-Public Use
  Company Number: 2006PV019677

PATIENT
  Age: 80 Year
  Sex: Female
  Weight: 49.4421 kg

DRUGS (4)
  1. BYETTA [Suspect]
     Indication: DIABETES MELLITUS NON-INSULIN-DEPENDENT
     Dosage: 5 MCG; BID; SC
     Route: 058
     Dates: start: 20060502, end: 20060818
  2. LEVOXYL [Concomitant]
  3. GLUCOPHAGE [Concomitant]
  4. ACTOS [Concomitant]

REACTIONS (7)
  - ANOREXIA [None]
  - CIRCADIAN RHYTHM SLEEP DISORDER [None]
  - FEELING JITTERY [None]
  - INSOMNIA [None]
  - NAUSEA [None]
  - UNEVALUABLE EVENT [None]
  - WEIGHT DECREASED [None]
